FAERS Safety Report 4895192-4 (Version None)
Quarter: 2006Q1

REPORT INFORMATION
  Report Type: 
  Country: None (occurrence: None)
  Receive Date: 20060125
  Receipt Date: 20060111
  Transmission Date: 20060701
  Serious: Yes (Hospitalization)
  Sender: FDA-Public Use
  Company Number: 2005BH002735

PATIENT
  Age: 44 Year
  Sex: Female

DRUGS (18)
  1. FORANE [Suspect]
     Indication: ANAESTHESIA
     Dosage: 0.5 PCT; ONCE; INH
     Route: 055
     Dates: start: 20051019, end: 20051019
  2. METHOTREXATE [Concomitant]
  3. PARACETAMOL [Concomitant]
  4. CLONT [Concomitant]
  5. FOLATE SODIUM [Concomitant]
  6. DIPIDOLOR [Concomitant]
  7. NOVALGIN [Concomitant]
  8. ACETAMINOPHEN [Concomitant]
  9. PASPERTIN [Concomitant]
  10. CLEXANE [Concomitant]
  11. LORAZEPAM [Concomitant]
  12. PROPOFOL [Concomitant]
  13. FENTANYL [Concomitant]
  14. ISOFLURANE [Concomitant]
  15. CEFAZOLIN [Concomitant]
  16. CLINIDIN [Concomitant]
  17. RINGER-LAKTAT [Concomitant]
  18. PERLALGAN [Concomitant]

REACTIONS (3)
  - COAGULATION TEST ABNORMAL [None]
  - DIZZINESS [None]
  - HEPATIC FAILURE [None]
